FAERS Safety Report 6180004-1 (Version None)
Quarter: 2009Q2

REPORT INFORMATION
  Report Type: 
  Country: None (occurrence: None)
  Receive Date: 20090501
  Receipt Date: 20090422
  Transmission Date: 20091009
  Serious: Yes (Hospitalization)
  Sender: FDA-Public Use
  Company Number: 20096639

PATIENT
  Age: 55 Year
  Sex: Female

DRUGS (4)
  1. LIORESAL [Suspect]
     Indication: MUSCLE SPASTICITY
     Dosage: MCG, DAILY, INTRATHECAL
     Route: 037
  2. KETAMINE HCL [Concomitant]
  3. MORPHINE [Concomitant]
  4. SUFENTANIL [Concomitant]

REACTIONS (4)
  - CATHETER RELATED COMPLICATION [None]
  - DYSGEUSIA [None]
  - HYPERHIDROSIS [None]
  - NIGHTMARE [None]
